FAERS Safety Report 10649592 (Version 1)
Quarter: 2014Q4

REPORT INFORMATION
  Report Type: Spontaneous
  Country: US (occurrence: US)
  Receive Date: 20141212
  Receipt Date: 20141212
  Transmission Date: 20150529
  Serious: Yes (Other)
  Sender: FDA-Public Use
  Company Number: US-BAYER-2014-181973

PATIENT
  Age: 57 Year
  Sex: Female
  Weight: 57 kg

DRUGS (8)
  1. CALCIUM [Concomitant]
     Active Substance: CALCIUM
  2. NIX [Suspect]
     Active Substance: PERMETHRIN
     Indication: LICE INFESTATION
  3. VITAMIN D [Concomitant]
     Active Substance: CHOLECALCIFEROL
  4. COENZYME Q10 [Concomitant]
     Active Substance: UBIDECARENONE
  5. VITAMIN C [Concomitant]
     Active Substance: ASCORBIC ACID
  6. VITAMIN E [Concomitant]
     Active Substance: .ALPHA.-TOCOPHEROL
  7. FISH OIL [Concomitant]
     Active Substance: FISH OIL
  8. RID 1-2-3 SYSTEM [Suspect]
     Active Substance: PIPERONYL BUTOXIDE\PYRETHRUM EXTRACT
     Indication: LICE INFESTATION
     Dosage: UNK
     Route: 061
     Dates: start: 20141101, end: 20141207

REACTIONS (8)
  - Drug dose omission [None]
  - Incorrect drug administration duration [None]
  - Formication [Not Recovered/Not Resolved]
  - Inappropriate schedule of drug administration [None]
  - Skin lesion [Not Recovered/Not Resolved]
  - Pruritus [Not Recovered/Not Resolved]
  - Rash erythematous [Unknown]
  - Incorrect drug administration duration [None]

NARRATIVE: CASE EVENT DATE: 201411
